FAERS Safety Report 21855798 (Version 2)
Quarter: 2023Q1

REPORT INFORMATION
  Report Type: Report from Study
  Country: BR (occurrence: BR)
  Receive Date: 20230112
  Receipt Date: 20230303
  Transmission Date: 20230418
  Serious: Yes (Other)
  Sender: FDA-Public Use
  Company Number: BR-CELLTRION INC.-2023BR000211

PATIENT

DRUGS (10)
  1. INFLIXIMAB [Suspect]
     Active Substance: INFLIXIMAB
     Indication: Crohn^s disease
     Dosage: UNK
     Route: 042
     Dates: start: 20220621
  2. INFLIXIMAB [Suspect]
     Active Substance: INFLIXIMAB
     Indication: Arthritis enteropathic
     Dosage: SECOND INFUSION
     Route: 042
     Dates: start: 202208
  3. INFLIXIMAB [Suspect]
     Active Substance: INFLIXIMAB
     Dosage: HAD ANOTHER INFUSION
     Route: 042
     Dates: start: 202209
  4. INFLIXIMAB [Suspect]
     Active Substance: INFLIXIMAB
     Dosage: FIFTH INFUSION
     Route: 042
     Dates: start: 20221101
  5. INFLIXIMAB [Suspect]
     Active Substance: INFLIXIMAB
     Dosage: 5 AMPOULES EVERY 6 WEEKS
     Route: 042
     Dates: start: 20230105
  6. HYDROCHLOROTHIAZIDE [Concomitant]
     Active Substance: HYDROCHLOROTHIAZIDE
     Indication: Hypertension
  7. APRESOLINE HYDROCHLORIDE [Concomitant]
     Active Substance: HYDRALAZINE HYDROCHLORIDE
     Indication: Hypertension
  8. NEBIVOLOL [Concomitant]
     Active Substance: NEBIVOLOL
     Indication: Hypertension
  9. LOSARTAN [Concomitant]
     Active Substance: LOSARTAN
     Indication: Hypertension
  10. COVID-19 vaccine [Concomitant]
     Dosage: SECOND BOOSTER DOSE OF COVID
     Dates: start: 202210

REACTIONS (14)
  - COVID-19 [Unknown]
  - Pneumonia [Unknown]
  - Symptom recurrence [Unknown]
  - Atrophy [Unknown]
  - Bone pain [Unknown]
  - Unevaluable event [Unknown]
  - Gait disturbance [Unknown]
  - Pyrexia [Unknown]
  - Peripheral swelling [Unknown]
  - Joint swelling [Unknown]
  - Hypoaesthesia [Unknown]
  - Therapy interrupted [Unknown]
  - Product availability issue [Unknown]
  - Off label use [Unknown]

NARRATIVE: CASE EVENT DATE: 20220801
